FAERS Safety Report 10654116 (Version 2)
Quarter: 2014Q4

REPORT INFORMATION
  Report Type: Spontaneous
  Country: US (occurrence: None)
  Receive Date: 20141212
  Receipt Date: 20141229
  Transmission Date: 20150529
  Serious: Yes (Other)
  Sender: FDA-Public Use
  Company Number: 2014-US-015896

PATIENT
  Age: 44 Year
  Sex: Male
  Weight: 71.7 kg

DRUGS (9)
  1. ACZONE (DAPSONE) [Concomitant]
  2. EPZICOM (ABACAVIR SULFATE, LAMIVUDINE) [Concomitant]
  3. HYDROCORTISONE BUTYRATE (HYDROCORTISONE BUTYRATE) [Concomitant]
  4. XYREM [Suspect]
     Active Substance: SODIUM OXYBATE
     Indication: NARCOLEPSY
     Route: 048
     Dates: start: 201404, end: 2014
  5. ELIMITE (PERMETHRIN) [Concomitant]
  6. DESYREL [Concomitant]
     Active Substance: TRAZODONE HYDROCHLORIDE
  7. PROVIGIL [Concomitant]
     Active Substance: MODAFINIL
  8. VIRAMUNE (NEVIRAPINE) [Concomitant]
  9. RESTORIL (TEMAZEPAM) [Concomitant]

REACTIONS (9)
  - Perianal erythema [None]
  - Stress [None]
  - Sleep apnoea syndrome [None]
  - Abnormal dreams [None]
  - Enterobiasis [None]
  - Anal injury [None]
  - Condition aggravated [None]
  - Thinking abnormal [None]
  - Sleep terror [None]

NARRATIVE: CASE EVENT DATE: 20141018
